FAERS Safety Report 7895752-2 (Version None)
Quarter: 2011Q4

REPORT INFORMATION
  Report Type: 
  Country: None (occurrence: None)
  Receive Date: 20111102
  Receipt Date: 20111019
  Transmission Date: 20120403
  Serious: Yes (Life-Threatening, Other)
  Sender: FDA-Public Use
  Company Number: 20110737

PATIENT
  Age: 58 Year
  Sex: Male

DRUGS (5)
  1. ASPIRIN [Concomitant]
  2. AZATHIOPRINE SODIUM [Concomitant]
  3. ACETYLCYSTEINE [Suspect]
     Indication: PULMONARY FIBROSIS
     Dosage: 600 MG THREE TIMES DAILY
  4. ROSUVASTATIN [Concomitant]
  5. REGADENOSON [Suspect]
     Indication: SCAN MYOCARDIAL PERFUSION
     Dosage: 0.4 MG  INTRAVENOUS
     Route: 042

REACTIONS (5)
  - CORONARY ARTERY DISEASE [None]
  - ATRIOVENTRICULAR BLOCK [None]
  - HYPERCHOLESTEROLAEMIA [None]
  - CARDIAC ARREST [None]
  - MYOCARDIAL ISCHAEMIA [None]
